FAERS Safety Report 8454698-1 (Version None)
Quarter: 2012Q2

REPORT INFORMATION
  Report Type: 
  Country: None (occurrence: None)
  Receive Date: 20120615
  Receipt Date: 20120615
  Transmission Date: 20120825
  Serious: Yes (Hospitalization)
  Sender: FDA-Public Use
  Company Number: None

PATIENT
  Sex: Female
  Weight: 58.9676 kg

DRUGS (2)
  1. XELODA [Suspect]
     Indication: BREAST CANCER
     Dosage: 84 3 TWICE A DAY 14 DAYS PO
     Route: 048
     Dates: start: 20120612
  2. TYKERB [Suspect]
     Indication: BREAST CANCER
     Dosage: 150 5 TABS EVERY DAY PO
     Route: 048
     Dates: start: 20120612

REACTIONS (2)
  - ABDOMINAL PAIN UPPER [None]
  - DIARRHOEA [None]
